FAERS Safety Report 5840516-4 (Version None)
Quarter: 2008Q3

REPORT INFORMATION
  Report Type: 
  Country: None (occurrence: None)
  Receive Date: 20080807
  Receipt Date: 20080807
  Transmission Date: 20090109
  Serious: Yes (Death)
  Sender: FDA-Public Use
  Company Number: None

PATIENT
  Age: 44 Year
  Sex: Female
  Weight: 54.4316 kg

DRUGS (12)
  1. CYMBALTA [Suspect]
     Indication: NEUROPATHY PERIPHERAL
     Dosage: 1 CAPSULE DAILY PO
     Route: 048
     Dates: start: 20080713, end: 20080723
  2. OPANA [Concomitant]
  3. LYRICA [Concomitant]
  4. PERCOCET [Concomitant]
  5. NEXIUM [Concomitant]
  6. SINGULAIR [Concomitant]
  7. IMITREX [Concomitant]
  8. CYMBALTA [Concomitant]
  9. ZOLOFT [Concomitant]
  10. ZONISAMIDE [Concomitant]
  11. TRAZONDONE [Concomitant]
  12. ESTRADIOL [Concomitant]

REACTIONS (1)
  - COMPLETED SUICIDE [None]
